FAERS Safety Report 21212667 (Version 1)
Quarter: 2022Q3

REPORT INFORMATION
  Report Type: Spontaneous
  Country: US (occurrence: None)
  Receive Date: 20220814
  Receipt Date: 20220814
  Transmission Date: 20221027
  Serious: No
  Sender: FDA-Public Use
  Company Number: None

PATIENT
  Age: 64 Year
  Sex: Female
  Weight: 78.75 kg

DRUGS (7)
  1. RALOXIFENE [Suspect]
     Active Substance: RALOXIFENE
     Indication: Osteoporosis
     Dates: start: 20220811, end: 20220813
  2. DIAZEPAM [Concomitant]
  3. lasix [Concomitant]
  4. POTASSIUM [Concomitant]
     Active Substance: POTASSIUM
  5. LAMOTRIGINE [Concomitant]
     Active Substance: LAMOTRIGINE
  6. PRIMIDONE [Concomitant]
     Active Substance: PRIMIDONE
  7. vit D calcium [Concomitant]

REACTIONS (2)
  - Migraine [None]
  - Neck pain [None]

NARRATIVE: CASE EVENT DATE: 20220812
